FAERS Safety Report 6787669-1 (Version None)
Quarter: 2010Q2

REPORT INFORMATION
  Report Type: 
  Country: None (occurrence: None)
  Receive Date: 20100621
  Receipt Date: 20100604
  Transmission Date: 20101027
  Serious: Yes (Hospitalization)
  Sender: FDA-Public Use
  Company Number: 1000014258

PATIENT
  Age: 75 Year
  Sex: Female

DRUGS (9)
  1. MILNACIPRAN (MILNACIPRAN HYDROCHLORIDE) (TABLETS) [Suspect]
     Indication: DEPRESSION
     Dosage: 25MG (25MG, 1 IN 1D) ORAL, 75 MG (75 MG, 1 IN 1D) ORAL, 100MG (100MG 1 IN 1D) ORAL
     Route: 048
     Dates: start: 20081021, end: 20081117
  2. MILNACIPRAN (MILNACIPRAN HYDROCHLORIDE) (TABLETS) [Suspect]
     Indication: DEPRESSION
     Dosage: 25MG (25MG, 1 IN 1D) ORAL, 75 MG (75 MG, 1 IN 1D) ORAL, 100MG (100MG 1 IN 1D) ORAL
     Route: 048
     Dates: start: 20081202, end: 20090105
  3. MILNACIPRAN (MILNACIPRAN HYDROCHLORIDE) (TABLETS) [Suspect]
     Indication: DEPRESSION
     Dosage: 25MG (25MG, 1 IN 1D) ORAL, 75 MG (75 MG, 1 IN 1D) ORAL, 100MG (100MG 1 IN 1D) ORAL
     Route: 048
     Dates: start: 20090106, end: 20090303
  4. RISPERIDONE [Suspect]
     Indication: DEPRESSION
     Dosage: 2MG (2MG, 1 IN 1D) ORAL
     Route: 048
     Dates: start: 20071218, end: 20080303
  5. CLONAZEPAM [Concomitant]
  6. DILTIAZEM [Concomitant]
  7. ASPIRIN [Concomitant]
  8. MECOBALAMIN [Concomitant]
  9. TOCOPHEROL CONCENTRATE CAP [Concomitant]

REACTIONS (5)
  - APATHY [None]
  - DEMENTIA WITH LEWY BODIES [None]
  - DEPRESSION [None]
  - INSOMNIA [None]
  - PARKINSON'S DISEASE [None]
